FAERS Safety Report 23074975 (Version 1)
Quarter: 2023Q4

REPORT INFORMATION
  Report Type: Spontaneous
  Country: IE (occurrence: IE)
  Receive Date: 20231017
  Receipt Date: 20231017
  Transmission Date: 20240110
  Serious: Yes (Other)
  Sender: FDA-Public Use
  Company Number: IE-ROCHE-3431762

PATIENT
  Age: 69 Year
  Sex: Male
  Weight: 105 kg

DRUGS (3)
  1. TRASTUZUMAB [Suspect]
     Active Substance: TRASTUZUMAB
     Indication: Lung adenocarcinoma
     Dosage: UNK
     Route: 065
     Dates: start: 20230522
  2. NIVOLUMAB [Suspect]
     Active Substance: NIVOLUMAB
     Indication: Lung adenocarcinoma
     Dosage: UNK
     Route: 065
     Dates: start: 20230116, end: 20230611
  3. DOCETAXEL [Suspect]
     Active Substance: DOCETAXEL
     Indication: Lung adenocarcinoma
     Dosage: UNK
     Route: 065
     Dates: start: 20230522

REACTIONS (3)
  - Brain neoplasm [Unknown]
  - Neoplasm progression [Unknown]
  - Off label use [Unknown]

NARRATIVE: CASE EVENT DATE: 20230501
